FAERS Safety Report 17184671 (Version 1)
Quarter: 2019Q4

REPORT INFORMATION
  Report Type: Spontaneous
  Country: US (occurrence: US)
  Receive Date: 20191127
  Receipt Date: 20191127
  Transmission Date: 20200122
  Serious: Yes (Death)
  Sender: FDA-Public Use
  Company Number: None

PATIENT
  Age: 64 Year
  Sex: Male

DRUGS (5)
  1. DEXAMETHASONE. [Suspect]
     Active Substance: DEXAMETHASONE
     Indication: RECTAL CANCER
     Route: 042
     Dates: start: 20190822
  2. FLUOROURACIL. [Concomitant]
     Active Substance: FLUOROURACIL
  3. OXALIPLATIN. [Concomitant]
     Active Substance: OXALIPLATIN
  4. LEUCOVORIN CALCIUM. [Concomitant]
     Active Substance: LEUCOVORIN CALCIUM
  5. ONDANSETRON HCL [Suspect]
     Active Substance: ONDANSETRON HYDROCHLORIDE
     Route: 042

REACTIONS (1)
  - Death [None]

NARRATIVE: CASE EVENT DATE: 20191127
